FAERS Safety Report 5423159-6 (Version None)
Quarter: 2007Q3

REPORT INFORMATION
  Report Type: 
  Country: None (occurrence: None)
  Receive Date: 20070821
  Receipt Date: 20070808
  Transmission Date: 20080115
  Serious: Yes (Hospitalization)
  Sender: FDA-Public Use
  Company Number: DSU-2007-00463

PATIENT
  Sex: Male

DRUGS (1)
  1. OLMESARTAN MEDOXOMIL AND HYDROCHLOROTHIZIDE [Suspect]
     Indication: HYPERTENSION
     Dosage: PER ORAL
     Route: 048

REACTIONS (2)
  - HYPERKALAEMIA [None]
  - PALPITATIONS [None]
